FAERS Safety Report 6312400-3 (Version None)
Quarter: 2009Q3

REPORT INFORMATION
  Report Type: 
  Country: None (occurrence: None)
  Receive Date: 20090813
  Receipt Date: 20090730
  Transmission Date: 20100115
  Serious: Yes (Death, Other)
  Sender: FDA-Public Use
  Company Number: 2009BI024215

PATIENT
  Sex: Female

DRUGS (1)
  1. ZEVALIN [Suspect]
     Indication: NON-HODGKIN'S LYMPHOMA
     Dosage: 792 MBQ; 1X; IV
     Route: 042
     Dates: start: 20090616, end: 20090723

REACTIONS (2)
  - PLATELET COUNT DECREASED [None]
  - SUDDEN DEATH [None]
